FAERS Safety Report 21178225 (Version 1)
Quarter: 2022Q3

REPORT INFORMATION
  Report Type: Spontaneous
  Country: GB (occurrence: GB)
  Receive Date: 20220805
  Receipt Date: 20220805
  Transmission Date: 20221026
  Serious: Yes (Hospitalization)
  Sender: FDA-Public Use
  Company Number: GB-Bristol Laboratories Ltd-BLL202207-000134

PATIENT
  Sex: Male

DRUGS (8)
  1. AMLODIPINE [Suspect]
     Active Substance: AMLODIPINE BESYLATE
     Indication: Product used for unknown indication
     Dosage: UNK, AMLODIPINE 5MG TABLETS WAS INITIATED 5 WEEKS AGO
     Route: 065
  2. LOSARTAN [Suspect]
     Active Substance: LOSARTAN
     Indication: Product used for unknown indication
     Dosage: UNK
     Route: 065
  3. RAMIPRIL [Suspect]
     Active Substance: RAMIPRIL
     Indication: Product used for unknown indication
     Dosage: UNK
     Route: 065
  4. BISOPROLOL [Concomitant]
     Active Substance: BISOPROLOL
     Dosage: UNK, BISOPROLOL 2.5MG TABS
     Route: 065
  5. CLOPIDOGREL [Concomitant]
     Active Substance: CLOPIDOGREL BISULFATE
     Dosage: UNK, CLOPIDOGREL 75MG TABS
     Route: 065
  6. OMEPRAZOLE [Concomitant]
     Active Substance: OMEPRAZOLE
     Dosage: UNK, OMEPRAZOLE 20MG CAPS
     Route: 065
  7. RANEXA [Concomitant]
     Active Substance: RANOLAZINE
     Dosage: UNK, RANEXA 375 MG TABS (RANOLAZINE)
     Route: 065
  8. ROSUVASTATIN [Concomitant]
     Active Substance: ROSUVASTATIN
     Dosage: UNK, ROSUVASTATIN 20MG TABS
     Route: 065

REACTIONS (6)
  - Pulmonary oedema [Not Recovered/Not Resolved]
  - Pneumonia [Recovered/Resolved]
  - Gastrooesophageal reflux disease [Unknown]
  - Cough [Not Recovered/Not Resolved]
  - Asthenia [Unknown]
  - Dyspnoea exertional [Unknown]
